FAERS Safety Report 21774936 (Version 1)
Quarter: 2022Q4

REPORT INFORMATION
  Report Type: Spontaneous
  Country: US (occurrence: US)
  Receive Date: 20221225
  Receipt Date: 20221225
  Transmission Date: 20230112
  Serious: No
  Sender: FDA-Public Use
  Company Number: US-GSK-US2022AMR191148

PATIENT
  Sex: Female

DRUGS (1)
  1. BREO ELLIPTA [Suspect]
     Active Substance: FLUTICASONE FUROATE\VILANTEROL TRIFENATATE
     Indication: Product used for unknown indication
     Dosage: UNK 100MCG/25MCG

REACTIONS (5)
  - Dizziness [Unknown]
  - Balance disorder [Unknown]
  - Chest discomfort [Unknown]
  - Paraesthesia [Unknown]
  - Dyspnoea [Unknown]
